FAERS Safety Report 4874201-2 (Version None)
Quarter: 2006Q1

REPORT INFORMATION
  Report Type: 
  Country: None (occurrence: None)
  Receive Date: 20060106
  Receipt Date: 20051226
  Transmission Date: 20060701
  Serious: Yes (Hospitalization)
  Sender: FDA-Public Use
  Company Number: JP-JNJFOC-20051101654

PATIENT
  Sex: Female

DRUGS (4)
  1. ITRIZOLE [Suspect]
     Route: 048
  2. ITRIZOLE [Suspect]
     Indication: NAIL TINEA
     Route: 048
  3. OLOPATADINE HYDROCHLORIDE [Suspect]
     Indication: ECZEMA
     Route: 048
     Dates: start: 20050723, end: 20050916
  4. PREDNISOLONE [Concomitant]
     Indication: ECZEMA
     Route: 061
     Dates: start: 20050909, end: 20050916

REACTIONS (4)
  - BILIARY CIRRHOSIS [None]
  - CHOLANGITIS [None]
  - HEPATIC FUNCTION ABNORMAL [None]
  - JAUNDICE [None]
